FAERS Safety Report 5741503-7 (Version None)
Quarter: 2008Q2

REPORT INFORMATION
  Report Type: 
  Country: None (occurrence: None)
  Receive Date: 20080519
  Receipt Date: 20080404
  Transmission Date: 20081010
  Serious: Yes (Other)
  Sender: FDA-Public Use
  Company Number: JP-BAYER-200810635BYL

PATIENT
  Age: 11 Year
  Sex: Male
  Weight: 27 kg

DRUGS (14)
  1. ASPIRIN [Suspect]
     Indication: THROMBOSIS PROPHYLAXIS
     Dosage: TOTAL DAILY DOSE: 100 MG  UNIT DOSE: 100 MG
     Route: 048
     Dates: start: 20080110, end: 20080115
  2. DIGOSIN [Concomitant]
     Route: 048
  3. LASIX [Concomitant]
     Route: 048
  4. SPIRONOLACTONE [Concomitant]
     Route: 048
  5. SELIS [Concomitant]
     Route: 048
  6. CROSS EIGHT M [Concomitant]
     Route: 065
     Dates: start: 20080108, end: 20080109
  7. CROSS EIGHT M [Concomitant]
     Route: 065
     Dates: start: 20080122, end: 20080122
  8. CROSS EIGHT M [Concomitant]
     Route: 065
     Dates: start: 20080110, end: 20080113
  9. CROSS EIGHT M [Concomitant]
     Route: 065
     Dates: start: 20080117, end: 20080117
  10. CROSS EIGHT M [Concomitant]
     Route: 065
     Dates: start: 20080115, end: 20080115
  11. CROSS EIGHT M [Concomitant]
     Route: 065
     Dates: start: 20080119, end: 20080119
  12. CROSS EIGHT M [Concomitant]
     Route: 065
     Dates: start: 20080124, end: 20080124
  13. SOLDEM [Concomitant]
     Route: 065
     Dates: start: 20080110, end: 20080110
  14. PICILLIBACTA [Concomitant]
     Route: 065
     Dates: start: 20080110, end: 20080110

REACTIONS (1)
  - THROMBOCYTOPENIA [None]
